FAERS Safety Report 7609850-1 (Version None)
Quarter: 2011Q3

REPORT INFORMATION
  Report Type: 
  Country: None (occurrence: None)
  Receive Date: 20110714
  Receipt Date: 20110708
  Transmission Date: 20111222
  Serious: Yes (Other)
  Sender: FDA-Public Use
  Company Number: NL-ABBOTT-11P-114-0715437-00

PATIENT
  Sex: Female
  Weight: 90 kg

DRUGS (5)
  1. PREDNISOLONE [Concomitant]
     Indication: RHEUMATOID ARTHRITIS
     Route: 048
     Dates: start: 20110101
  2. CELECOXIB [Concomitant]
     Indication: ARTHRALGIA
     Route: 048
     Dates: start: 20070101
  3. METOPROLOL TARTRATE [Concomitant]
     Indication: HYPERTENSION
     Route: 048
     Dates: start: 20110101
  4. ESOMEPRAZOLE MAGNESIUM [Concomitant]
     Indication: GASTRIC DISORDER
     Route: 048
     Dates: start: 20070101
  5. HUMIRA [Suspect]
     Indication: RHEUMATOID ARTHRITIS
     Route: 058
     Dates: start: 20110112, end: 20110316

REACTIONS (5)
  - GOITRE [None]
  - VOMITING [None]
  - NAUSEA [None]
  - FATIGUE [None]
  - EPISTAXIS [None]
